FAERS Safety Report 5470043-8 (Version None)
Quarter: 2007Q3

REPORT INFORMATION
  Report Type: 
  Country: None (occurrence: None)
  Receive Date: 20070927
  Receipt Date: 20070921
  Transmission Date: 20080115
  Serious: Yes (Other)
  Sender: FDA-Public Use
  Company Number: IT-BOEHRINGER INGELHEIM PHARMACEUTICALS, INC.-2007-DE-05656GD

PATIENT
  Age: 43 Year
  Sex: Male

DRUGS (4)
  1. PRAMIPEXOLE DIHYDROCHLORIDE [Suspect]
     Indication: PARKINSON'S DISEASE
  2. PRAMIPEXOLE DIHYDROCHLORIDE [Suspect]
  3. LEVODOPA/BENSERAZIDE [Suspect]
     Indication: PARKINSON'S DISEASE
     Dosage: LEVODOPA 300 MG
  4. LEVODOPA/BENSERAZIDE [Suspect]
     Dosage: LEVODOPA 800 MG

REACTIONS (4)
  - DEPRESSION [None]
  - INSOMNIA [None]
  - ON AND OFF PHENOMENON [None]
  - PATHOLOGICAL GAMBLING [None]
